FAERS Safety Report 18931810 (Version 1)
Quarter: 2021Q1

REPORT INFORMATION
  Report Type: Spontaneous
  Country: US (occurrence: US)
  Receive Date: 20210223
  Receipt Date: 20210223
  Transmission Date: 20210420
  Serious: No
  Sender: FDA-Public Use
  Company Number: US-IGSA-BIG0012550

PATIENT
  Age: 75 Year
  Sex: Female
  Weight: 59 kg

DRUGS (15)
  1. CARTIA XT [Concomitant]
     Active Substance: DILTIAZEM HYDROCHLORIDE
  2. COMBIVENT [Concomitant]
     Active Substance: ALBUTEROL SULFATE\IPRATROPIUM BROMIDE
  3. FISH OIL CONCENTRATE [Concomitant]
     Active Substance: FISH OIL
  4. VITAMIN D [COLECALCIFEROL] [Concomitant]
     Active Substance: CHOLECALCIFEROL
  5. METOPROLOL SUCCINATE. [Concomitant]
     Active Substance: METOPROLOL SUCCINATE
  6. ASMANEX [Concomitant]
     Active Substance: MOMETASONE FUROATE
  7. TIKOSYN [Concomitant]
     Active Substance: DOFETILIDE
  8. ASPIRIN (E.C.) [Concomitant]
     Active Substance: ASPIRIN
  9. NASONEX [Concomitant]
     Active Substance: MOMETASONE FUROATE
  10. SPIRIVA RESPIMAT [Concomitant]
     Active Substance: TIOTROPIUM BROMIDE
  11. LORATADINE. [Concomitant]
     Active Substance: LORATADINE
  12. METHIMAZOLE. [Concomitant]
     Active Substance: METHIMAZOLE
  13. PROLASTIN?C LIQUID [Suspect]
     Active Substance: .ALPHA.1-PROTEINASE INHIBITOR HUMAN
     Indication: ALPHA-1 ANTITRYPSIN DEFICIENCY
     Dosage: 3535 MILLIGRAM, Q.WK.
     Route: 042
     Dates: start: 20181218
  14. SINGULAIR [Concomitant]
     Active Substance: MONTELUKAST SODIUM
  15. ZOLPIDEM TARTRATE. [Concomitant]
     Active Substance: ZOLPIDEM TARTRATE

REACTIONS (1)
  - Red blood cell abnormality [Not Recovered/Not Resolved]

NARRATIVE: CASE EVENT DATE: 202006
